FAERS Safety Report 12791405 (Version 2)
Quarter: 2016Q4

REPORT INFORMATION
  Report Type: Spontaneous
  Country: FR (occurrence: FR)
  Receive Date: 20160929
  Receipt Date: 20161012
  Transmission Date: 20170207
  Serious: Yes (Other)
  Sender: FDA-Public Use
  Company Number: PHHY2016FR131666

PATIENT
  Age: 3 Day
  Sex: Male
  Weight: 2.28 kg

DRUGS (6)
  1. SPECIAFOLDINE [Concomitant]
     Active Substance: FOLIC ACID
     Indication: PRODUCT USED FOR UNKNOWN INDICATION
     Route: 064
  2. TRILEPTAL [Suspect]
     Active Substance: OXCARBAZEPINE
     Indication: MATERNAL EXPOSURE DURING PREGNANCY
     Dosage: 2 DF, QD
     Route: 064
     Dates: start: 20160821
  3. SEROPLEX [Concomitant]
     Active Substance: ESCITALOPRAM OXALATE
     Indication: PRODUCT USED FOR UNKNOWN INDICATION
     Dosage: MATERNAL DOSE 10 MG
     Route: 064
  4. DONORMYL [Concomitant]
     Active Substance: DOXYLAMINE SUCCINATE
     Indication: PRODUCT USED FOR UNKNOWN INDICATION
     Dosage: UNK
     Route: 064
  5. URBANYL [Concomitant]
     Active Substance: CLOBAZAM
     Indication: PRODUCT USED FOR UNKNOWN INDICATION
     Dosage: MATERNAL DOSE 10 MG
     Route: 064
  6. ATENOLOL. [Concomitant]
     Active Substance: ATENOLOL
     Indication: PRODUCT USED FOR UNKNOWN INDICATION
     Dosage: UNK
     Route: 064

REACTIONS (2)
  - Coagulation disorder neonatal [Recovered/Resolved]
  - Vitamin K deficiency [Recovered/Resolved]

NARRATIVE: CASE EVENT DATE: 20160824
